FAERS Safety Report 19289147 (Version 1)
Quarter: 2021Q2

REPORT INFORMATION
  Report Type: Spontaneous
  Country: KE (occurrence: KE)
  Receive Date: 20210521
  Receipt Date: 20210521
  Transmission Date: 20210717
  Serious: Yes (Hospitalization)
  Sender: FDA-Public Use
  Company Number: KE-LUPIN PHARMACEUTICALS INC.-2021-07522

PATIENT
  Age: 29 Year
  Sex: Male

DRUGS (13)
  1. OLANZAPINE. [Suspect]
     Active Substance: OLANZAPINE
     Indication: SCHIZOPHRENIA
     Dosage: UNK (2.5?10 MG/DAY)
     Route: 048
  2. CLOZAPINE. [Concomitant]
     Active Substance: CLOZAPINE
     Indication: SCHIZOPHRENIA
     Dosage: 25 MILLIGRAM, QD
     Route: 048
  3. FLUPHENAZINE [Concomitant]
     Active Substance: FLUPHENAZINE
     Indication: SCHIZOPHRENIA
     Dosage: UNK (LONG?ACTING INJECTABLE (25?37.5 MG MONTHLY) ON AND OFF, GIVEN SOMETIMES IN COMBINATION WITH OLA
     Route: 065
  4. CLOZAPINE. [Concomitant]
     Active Substance: CLOZAPINE
     Dosage: 200 MILLIGRAM (DOSE REDUCTION)
     Route: 048
  5. OLANZAPINE. [Suspect]
     Active Substance: OLANZAPINE
     Dosage: 20 MILLIGRAM, QD
     Route: 048
  6. BUPROPION. [Concomitant]
     Active Substance: BUPROPION
     Indication: SCHIZOPHRENIA
     Dosage: 150 MILLIGRAM, QD
     Route: 065
  7. RISPERIDONE. [Suspect]
     Active Substance: RISPERIDONE
     Indication: SCHIZOPHRENIA
     Dosage: 6 MILLIGRAM, QD
     Route: 048
  8. CLOZAPINE. [Concomitant]
     Active Substance: CLOZAPINE
     Dosage: 400 MILLIGRAM (THE DOSE WAS ESCALATED BY 25 MG/DAY UP TO A DOSAGE OF 400 MG/DAY IN DIVIDED DOSES BY
     Route: 048
  9. CLOZAPINE. [Concomitant]
     Active Substance: CLOZAPINE
     Dosage: 300 MILLIGRAM (SECOND TRIAL OF A DOSE ESCALATION, BUT MORE GRADUAL THIS TIME (12.5 MG ON ALTERNATE D
     Route: 048
  10. CLOZAPINE. [Concomitant]
     Active Substance: CLOZAPINE
     Dosage: 200 MILLIGRAM (IN COMBINATION WITH ARIPIPRAZOLE)
     Route: 048
  11. QUETIAPINE FUMARATE. [Suspect]
     Active Substance: QUETIAPINE FUMARATE
     Indication: SCHIZOPHRENIA
     Dosage: 800 MILLIGRAM, QD
     Route: 048
  12. NICOTINE. [Concomitant]
     Active Substance: NICOTINE
     Indication: SCHIZOPHRENIA
     Dosage: UNK (8?12 MG/DAY)
     Route: 065
  13. ARIPIPRAZOLE. [Concomitant]
     Active Substance: ARIPIPRAZOLE
     Indication: SCHIZOPHRENIA
     Dosage: 10 MILLIGRAM, QD
     Route: 048

REACTIONS (1)
  - Treatment failure [Unknown]
